FAERS Safety Report 21585295 (Version 1)
Quarter: 2022Q4

REPORT INFORMATION
  Report Type: Spontaneous
  Country: FR (occurrence: FR)
  Receive Date: 20221111
  Receipt Date: 20221111
  Transmission Date: 20230113
  Serious: Yes (Death)
  Sender: FDA-Public Use
  Company Number: None

PATIENT
  Age: 74 Year
  Sex: Female
  Weight: 92 kg

DRUGS (6)
  1. FLUCONAZOLE [Suspect]
     Active Substance: FLUCONAZOLE
     Indication: Mucocutaneous candidiasis
     Dosage: 1 ADMINISTRATION PER DAY, FREQUENCY TIME : 1 DAY, DURATION: 1 DAY, UNIT DOSE: 200 MG
     Route: 065
     Dates: start: 20220915, end: 20220915
  2. FLUCONAZOLE [Suspect]
     Active Substance: FLUCONAZOLE
     Dosage: 1 ADMINISTRATION PER DAY, FREQUENCY TIME : 1 DAY, DURATION: 5 DAYS, UNIT DOSE: 100 MG
     Route: 065
     Dates: start: 20220916, end: 20220921
  3. FLUCONAZOLE [Suspect]
     Active Substance: FLUCONAZOLE
     Dosage: 1 ADMINISTRATION PER DAY, FREQUENCY TIME : 1 DAY, DURATION: 256 DAYS, UNIT DOSE: 200 MG
     Route: 065
     Dates: start: 2022, end: 20220914
  4. CIPROFLOXACIN [Suspect]
     Active Substance: CIPROFLOXACIN
     Indication: Enterobacter infection
     Dosage: 1500 MILLIGRAM DAILY; 1500MG PER DAY, DURATION: 40 DAYS, UNIT DOSE: 750 MG
     Route: 065
     Dates: start: 20220804, end: 20220913
  5. METHOTREXATE SODIUM [Suspect]
     Active Substance: METHOTREXATE SODIUM
     Indication: Rheumatoid arthritis
     Dosage: 1 INJECTION PER WEEK, FREQUENCY TIME : 7 DAYS, UNIT DOSE: 1 DF, METOJECT 20 MG/0.40 ML, THERAPY STAR
     Route: 065
     Dates: end: 20220915
  6. NEO-MERCAZOLE [Suspect]
     Active Substance: CARBIMAZOLE
     Indication: Hyperthyroidism
     Dosage: 2 TABLETS PER DAY, IN THE MORNING, FORM STRENGTH : 5 MG, FREQUENCY TIME : 1 DAY, DURATION: 96 DAYS,
     Route: 065
     Dates: start: 20220611, end: 20220915

REACTIONS (1)
  - Pancytopenia [Fatal]

NARRATIVE: CASE EVENT DATE: 20220913
